FAERS Safety Report 10655215 (Version 1)
Quarter: 2014Q4

REPORT INFORMATION
  Report Type: Spontaneous
  Country: FR (occurrence: FR)
  Receive Date: 20141216
  Receipt Date: 20141216
  Transmission Date: 20150529
  Serious: Yes (Life-Threatening, Other)
  Sender: FDA-Public Use
  Company Number: FR-PFIZER INC-2014342923

PATIENT
  Age: 81 Year
  Sex: Female

DRUGS (9)
  1. XANAX [Suspect]
     Active Substance: ALPRAZOLAM
     Dosage: 0.5 MG, 3X/DAY
     Route: 048
     Dates: start: 20140923
  2. HAVLANE [Suspect]
     Active Substance: LOPRAZOLAM
     Dosage: 1 DF, 1X/DAY
     Route: 048
  3. FEMARA [Concomitant]
     Active Substance: LETROZOLE
     Dosage: 2.5 MG, 1X/DAY
  4. DOGMATIL [Suspect]
     Active Substance: SULPIRIDE
     Dosage: 50 MG, 1X/DAY
     Route: 048
  5. XANAX [Suspect]
     Active Substance: ALPRAZOLAM
     Dosage: 0.25 MG, 3X/DAY
     Route: 048
  6. XALATAN [Concomitant]
     Active Substance: LATANOPROST
     Dosage: UNK
  7. REFRESH CELLUVISC [Concomitant]
     Active Substance: CARBOXYMETHYLCELLULOSE SODIUM
     Dosage: 4 MG, UNK (IN BOTH EYES)
  8. EFFEXOR LP [Suspect]
     Active Substance: VENLAFAXINE HYDROCHLORIDE
     Dosage: 37.5 MG, 1X/DAY
     Route: 048
     Dates: start: 20140923
  9. ATIVAN [Suspect]
     Active Substance: LORAZEPAM
     Dosage: 60 MG, 1X/DAY
     Route: 048

REACTIONS (6)
  - Sinus tachycardia [Unknown]
  - Respiratory distress [Recovered/Resolved]
  - Acute kidney injury [Unknown]
  - Encephalopathy [Unknown]
  - Hypotension [Unknown]
  - Bundle branch block right [Unknown]

NARRATIVE: CASE EVENT DATE: 20140924
